FAERS Safety Report 7526040-1 (Version None)
Quarter: 2011Q2

REPORT INFORMATION
  Report Type: 
  Country: None (occurrence: None)
  Receive Date: 20110606
  Receipt Date: 20110525
  Transmission Date: 20111010
  Serious: Yes (Death, Other)
  Sender: FDA-Public Use
  Company Number: US-BAYER-2011-030615

PATIENT
  Age: 68 Year
  Sex: Male
  Weight: 52 kg

DRUGS (8)
  1. DOXORUBICIN HCL [Suspect]
     Indication: HEPATIC NEOPLASM MALIGNANT
     Dosage: 60 MG/M2, DAY 1 FOR CYCLES 1-6
     Route: 042
     Dates: start: 20110128, end: 20110128
  2. OMEPRAZOLE [Concomitant]
  3. PROCHLORPERAZINE TAB [Concomitant]
  4. ZOFRAN [Concomitant]
  5. AMLODIPINE [Concomitant]
  6. BLINDED SORAFENIB (RAF KINASE INHIBITOR) [Suspect]
     Indication: HEPATIC NEOPLASM MALIGNANT
     Dosage: 400 MG, BID
     Route: 048
     Dates: start: 20110128, end: 20110207
  7. ENTECAVIR [Concomitant]
  8. MINOCYCLINE HCL [Concomitant]
     Dosage: UNK
     Dates: start: 20110203

REACTIONS (4)
  - CARDIAC ARREST [None]
  - LETHARGY [None]
  - LUNG INFILTRATION [None]
  - EMPHYSEMATOUS PYELONEPHRITIS [None]
